FAERS Safety Report 17251296 (Version 1)
Quarter: 2020Q1

REPORT INFORMATION
  Report Type: Spontaneous
  Country: GB (occurrence: GB)
  Receive Date: 20200109
  Receipt Date: 20200109
  Transmission Date: 20200409
  Serious: Yes (Hospitalization, Other)
  Sender: FDA-Public Use
  Company Number: GB-TEVA-2020-GB-1164313

PATIENT
  Age: 41 Year
  Sex: Female

DRUGS (1)
  1. DULOXETINE. [Suspect]
     Active Substance: DULOXETINE
     Indication: MIGRAINE
     Dosage: 60 MG
     Route: 048
     Dates: start: 201904, end: 20191203

REACTIONS (3)
  - Melaena [Unknown]
  - Haematemesis [Unknown]
  - Haemorrhage [Unknown]
